FAERS Safety Report 25556850 (Version 1)
Quarter: 2025Q3

REPORT INFORMATION
  Report Type: Spontaneous
  Country: US (occurrence: None)
  Receive Date: 20250714
  Receipt Date: 20250714
  Transmission Date: 20251020
  Serious: Yes (Hospitalization)
  Sender: FDA-CTU
  Company Number: None

PATIENT
  Sex: Male

DRUGS (1)
  1. ERLEADA [Suspect]
     Active Substance: APALUTAMIDE
     Indication: Prostate cancer
     Dosage: 240 MG DAILY ORAL ?
     Route: 048
     Dates: start: 20231031

REACTIONS (3)
  - Urinary tract infection [None]
  - Pneumonia [None]
  - Intentional dose omission [None]
